FAERS Safety Report 16183714 (Version 2)
Quarter: 2020Q3

REPORT INFORMATION
  Report Type: Report from Study
  Country: JP (occurrence: JP)
  Receive Date: 20190411
  Receipt Date: 20190427
  Transmission Date: 20201105
  Serious: Yes (Other)
  Sender: FDA-Public Use
  Company Number: JP-ROCHE-2301020

PATIENT
  Age: 50 Year
  Sex: Male
  Weight: 40 kg

DRUGS (3)
  1. NOVOSEVEN [Concomitant]
     Active Substance: COAGULATION FACTOR VIIA RECOMBINANT HUMAN
     Route: 065
  2. EMICIZUMAB. [Suspect]
     Active Substance: EMICIZUMAB
     Indication: HAEMOPHILIA A WITH ANTI FACTOR VIII
     Route: 058
     Dates: start: 2012
  3. NOVOSEVEN [Concomitant]
     Active Substance: COAGULATION FACTOR VIIA RECOMBINANT HUMAN
     Route: 065
     Dates: start: 20190401, end: 20190401

REACTIONS (1)
  - Pulmonary haemorrhage [Recovered/Resolved]

NARRATIVE: CASE EVENT DATE: 20190331
